FAERS Safety Report 10903998 (Version 1)
Quarter: 2015Q1

REPORT INFORMATION
  Report Type: Spontaneous
  Country: US (occurrence: US)
  Receive Date: 20150311
  Receipt Date: 20150311
  Transmission Date: 20150721
  Serious: Yes (Other)
  Sender: FDA-Public Use
  Company Number: US-PFIZER INC-2015079463

PATIENT
  Age: 31 Year
  Sex: Female

DRUGS (1)
  1. DIPHENHYDRAMINE/DIPHENHYDRAMINE CITRATE/IBUPROFEN [Suspect]
     Active Substance: DIPHENHYDRAMINE\DIPHENHYDRAMINE CITRATE\IBUPROFEN
     Dosage: UNK

REACTIONS (6)
  - Mental status changes [Unknown]
  - Cardiogenic shock [Recovering/Resolving]
  - Pulmonary oedema [Recovering/Resolving]
  - Stress cardiomyopathy [Recovering/Resolving]
  - Hypotension [None]
  - Intentional overdose [Unknown]
